FAERS Safety Report 20319137 (Version 6)
Quarter: 2022Q2

REPORT INFORMATION
  Report Type: Report from Study
  Country: CA (occurrence: CA)
  Receive Date: 20220110
  Receipt Date: 20220428
  Transmission Date: 20220720
  Serious: Yes (Hospitalization, Other)
  Sender: FDA-Public Use
  Company Number: CA-OTSUKA-2022_000699

PATIENT
  Age: 73 Year
  Sex: Male

DRUGS (2)
  1. CEDAZURIDINE\DECITABINE [Suspect]
     Active Substance: CEDAZURIDINE\DECITABINE
     Indication: Myelodysplastic syndrome
     Dosage: UNK, (35 MG DECITABINE AND 100 MG CEDAZURIDINE)
     Route: 065
     Dates: start: 20220103
  2. CEDAZURIDINE\DECITABINE [Suspect]
     Active Substance: CEDAZURIDINE\DECITABINE
     Dosage: UNK, (35 MG DECITABINE AND 100 MG CEDAZURIDINE), CYCLE 2
     Route: 065
     Dates: start: 20220324

REACTIONS (13)
  - Chondrocalcinosis pyrophosphate [Recovered/Resolved]
  - Confusional state [Unknown]
  - Dysstasia [Unknown]
  - Platelet transfusion [Unknown]
  - Transfusion [Unknown]
  - Leukaemia [Recovered/Resolved]
  - Acute myeloid leukaemia [Unknown]
  - Groin infection [Recovered/Resolved]
  - Localised infection [Recovered/Resolved]
  - Pneumonia [Recovered/Resolved]
  - Biopsy bone marrow [Unknown]
  - COVID-19 [Unknown]
  - Decreased appetite [Unknown]

NARRATIVE: CASE EVENT DATE: 20220104
